FAERS Safety Report 9719179 (Version 1)
Quarter: 2013Q4

REPORT INFORMATION
  Report Type: Report from Study
  Country: MX (occurrence: MX)
  Receive Date: 20131127
  Receipt Date: 20131127
  Transmission Date: 20140711
  Serious: Yes (Other)
  Sender: FDA-Public Use
  Company Number: PHHY2013MX135151

PATIENT
  Age: 68 Year
  Sex: Female

DRUGS (9)
  1. EXFORGE HCT [Suspect]
     Indication: HYPERTENSION
     Dosage: 1 DF, (160 VALS/5 MG AMLO/12.5 MG HCTZ) DAILY
     Route: 048
     Dates: start: 201308, end: 201308
  2. EXFORGE HCT [Suspect]
     Dosage: 1 DF, (160 VALS/10 MG AMLO/12.5 MG HCTZ) DAILY
     Route: 048
  3. ISCOVER [Concomitant]
     Dosage: 1 DF, (75 MG) DAILY
     Dates: start: 201308
  4. LAMICTAL [Concomitant]
     Dosage: 2 DF, (25 MG) DAILY
     Dates: start: 201308
  5. LIPITOR [Concomitant]
     Dosage: UNK UKN, NIGHTS
     Dates: start: 201307
  6. SOMAZINA [Concomitant]
     Dosage: 500 MG, DAILY
     Dates: start: 201308
  7. NITRODERM [Concomitant]
     Dosage: 2 DF, (5 MG) DAILY
     Dates: start: 201308
  8. VITAMIN A [Concomitant]
     Dosage: 2 DF, (100 MG) DAILY
     Dates: start: 201308
  9. KRIADEX [Concomitant]
     Dosage: 7 GTT, (2.5 MG) DAILY
     Dates: start: 201308

REACTIONS (6)
  - Cerebrovascular accident [Not Recovered/Not Resolved]
  - Speech disorder [Not Recovered/Not Resolved]
  - Movement disorder [Not Recovered/Not Resolved]
  - Pain [Not Recovered/Not Resolved]
  - Stress [Not Recovered/Not Resolved]
  - Diabetes mellitus [Not Recovered/Not Resolved]
